FAERS Safety Report 4889230-2 (Version None)
Quarter: 2006Q1

REPORT INFORMATION
  Report Type: 
  Country: None (occurrence: None)
  Receive Date: 20060124
  Receipt Date: 20060116
  Transmission Date: 20060701
  Serious: Yes (Hospitalization)
  Sender: FDA-Public Use
  Company Number: US-BOEHRINGER INGELHEIM PHARMACEUTICALS, INC.-2006-BP-00609BP

PATIENT
  Age: 80 Year
  Sex: Male

DRUGS (4)
  1. SPIRIVA [Suspect]
     Route: 055
  2. FUROSEMIDE [Concomitant]
  3. COREG [Concomitant]
  4. OXYGEN (HUMIDIFIED) [Concomitant]

REACTIONS (3)
  - CAROTID ARTERY DISEASE [None]
  - DRY MOUTH [None]
  - PAROTITIS [None]
